FAERS Safety Report 6099402-X (Version None)
Quarter: 2009Q1

REPORT INFORMATION
  Report Type: 
  Country: None (occurrence: None)
  Receive Date: 20090226
  Receipt Date: 20090226
  Transmission Date: 20090719
  Serious: No
  Sender: FDA-Public Use
  Company Number: None

PATIENT
  Age: 48 Year
  Sex: Male
  Weight: 117.27 kg

DRUGS (1)
  1. VARENICLINE [Suspect]
     Indication: TOBACCO ABUSE
     Dosage: OTHER PO
     Route: 048
     Dates: start: 20080702, end: 20080710

REACTIONS (1)
  - NIGHTMARE [None]
